FAERS Safety Report 8969079 (Version 1)
Quarter: 2012Q4

REPORT INFORMATION
  Report Type: Spontaneous
  Country: US (occurrence: None)
  Receive Date: 20121214
  Receipt Date: 20121214
  Transmission Date: 20130627
  Serious: Yes (Death)
  Sender: FDA-Public Use
  Company Number: None

PATIENT

DRUGS (3)
  1. EFAVIRENZ [Suspect]
     Indication: ACQUIRED IMMUNO DEFICIENCY SYNDROME
     Route: 048
     Dates: start: 20100203
  2. TENOFOVIR DISOPROXIL FUMARATE+EMTRICITABINE [Concomitant]
  3. LOPINAVIR+RITONAVIR (KALETRA, ALUVIA, LPV/R) [Concomitant]

REACTIONS (2)
  - Abortion spontaneous [None]
  - Exposure during pregnancy [None]
